FAERS Safety Report 14035449 (Version 1)
Quarter: 2017Q4

REPORT INFORMATION
  Report Type: Spontaneous
  Country: FR (occurrence: FR)
  Receive Date: 20171003
  Receipt Date: 20171003
  Transmission Date: 20180321
  Serious: Yes (Other)
  Sender: FDA-Public Use
  Company Number: FR-MERCK KGAA-2028689

PATIENT
  Age: 66 Year
  Sex: Female

DRUGS (3)
  1. FLECAINIDE ACETATE. [Concomitant]
     Active Substance: FLECAINIDE ACETATE
  2. NOVOTHYROX [Suspect]
     Active Substance: LEVOTHYROXINE SODIUM
     Indication: HYPOTHYROIDISM
     Route: 048
  3. IZALGI (PAPAVER SOMNIFERUM W/PARACETAMOL) [Concomitant]

REACTIONS (4)
  - Hyperhidrosis [Unknown]
  - Fatigue [Unknown]
  - Blood thyroid stimulating hormone normal [Recovered/Resolved]
  - Tachycardia [Unknown]
